FAERS Safety Report 9349482 (Version 6)
Quarter: 2013Q4

REPORT INFORMATION
  Report Type: Spontaneous
  Country: GB (occurrence: GB)
  Receive Date: 20130614
  Receipt Date: 20131029
  Transmission Date: 20140711
  Serious: Yes (Life-Threatening, Hospitalization)
  Sender: FDA-Public Use
  Company Number: GB-JNJFOC-20130607628

PATIENT
  Age: 69 Year
  Sex: Male

DRUGS (10)
  1. IBUPROFEN [Suspect]
     Route: 048
  2. IBUPROFEN [Suspect]
     Indication: PAIN
     Route: 048
     Dates: start: 201005, end: 20130517
  3. IBUPROFEN [Suspect]
     Indication: PAIN
     Route: 048
     Dates: start: 20130518, end: 20130528
  4. APIXABAN [Suspect]
     Indication: KNEE ARTHROPLASTY
     Route: 048
     Dates: start: 20130517, end: 20130527
  5. SIMVASTATIN [Concomitant]
     Route: 065
  6. AMLODIPINE [Concomitant]
  7. BENDROFLUMETHIAZIDE [Concomitant]
  8. LATANOPROST [Concomitant]
  9. METFORMIN [Concomitant]
  10. TIMOLOL [Concomitant]

REACTIONS (1)
  - Gastrointestinal haemorrhage [Recovering/Resolving]
